FAERS Safety Report 11250979 (Version 1)
Quarter: 2015Q3

REPORT INFORMATION
  Report Type: Spontaneous
  Country: US (occurrence: US)
  Receive Date: 20150708
  Receipt Date: 20150708
  Transmission Date: 20151125
  Serious: No
  Sender: FDA-Public Use
  Company Number: US-ELI_LILLY_AND_COMPANY-US201105000197

PATIENT
  Sex: Female
  Weight: 82.54 kg

DRUGS (3)
  1. ALIMTA [Suspect]
     Active Substance: PEMETREXED DISODIUM
     Indication: LUNG NEOPLASM MALIGNANT
     Dosage: 990 MG, EVERY 3 WEEKS
     Dates: start: 20090109
  2. VITAMIN B12 [Concomitant]
     Active Substance: CYANOCOBALAMIN
     Dosage: UNK, UNKNOWN
  3. FOLIC ACID. [Concomitant]
     Active Substance: FOLIC ACID
     Dosage: UNK, UNKNOWN

REACTIONS (2)
  - Fluid retention [Not Recovered/Not Resolved]
  - Asthenia [Not Recovered/Not Resolved]
